FAERS Safety Report 8697994 (Version 2)
Quarter: 2013Q4

REPORT INFORMATION
  Report Type: Spontaneous
  Country: US (occurrence: US)
  Receive Date: 20120801
  Receipt Date: 20131106
  Transmission Date: 20140711
  Serious: Yes (Disabling, Other)
  Sender: FDA-Public Use
  Company Number: US-MSD-1207USA010626

PATIENT
  Sex: Male

DRUGS (42)
  1. ZOCOR [Suspect]
     Route: 048
  2. LIPITOR [Suspect]
  3. XALATAN [Suspect]
     Route: 047
  4. GLUCOPHAGE [Suspect]
  5. COREG [Suspect]
  6. LUVOX [Suspect]
  7. PROZAC [Suspect]
  8. CYCLOSPORINE [Suspect]
  9. ZETIA [Suspect]
     Route: 048
  10. LOTRIMIN (MICONAZOLE NITRATE) [Suspect]
  11. PLAVIX [Suspect]
  12. REGLAN [Suspect]
  13. PROSCAR [Suspect]
     Route: 048
  14. TOPROL XL TABLETS [Suspect]
  15. CODEINE [Suspect]
  16. ALPRAZOLAM [Suspect]
  17. TRAMADOL HYDROCHLORIDE [Suspect]
  18. MOTRIN [Suspect]
  19. VIAGRA [Suspect]
  20. METOPROLOL TARTRATE [Suspect]
     Dosage: 25 MG, BID
  21. METFORMIN HYDROCHLORIDE [Suspect]
     Dosage: 500 MG, UNK
  22. ADVIL [Suspect]
     Dosage: 200 MG, PRN
  23. CLOZAPINE [Concomitant]
  24. FOLIC ACID [Concomitant]
  25. DIAZEPAM [Concomitant]
     Dosage: 5 MG, UNK
  26. THERA TEARS [Concomitant]
  27. LUMIGAN [Concomitant]
     Dosage: 1 GTT, QD
  28. PILOCARPINE [Concomitant]
  29. TIMOLOL MALEATE [Concomitant]
     Dosage: 1 GTT, 4*/DAY
     Route: 047
  30. PRAVASTATIN SODIUM [Concomitant]
     Dosage: 40 MG, UNK
  31. FUROSEMIDE [Concomitant]
  32. POTASSIUM CHLORIDE - USP [Concomitant]
     Dosage: 20 MG, UNK
     Route: 048
  33. LANTUS [Concomitant]
     Dosage: 12 IU, UNK
  34. ALLOPURINOL [Concomitant]
     Dosage: 300 MG, UNK
  35. OXYCODONE [Concomitant]
  36. DIGOXIN [Concomitant]
     Dosage: 0.125 MG, ONE PILL ONCE A DAY AND TWO PILLS ONCE A DAY
  37. COZAAR [Concomitant]
  38. ASPIRIN [Concomitant]
     Dosage: 81 MG, BID
  39. ASPIRIN [Concomitant]
     Dosage: 50 MG, UNK
  40. VICODIN [Concomitant]
  41. OMEGA-3 MARINE TRIGLYCERIDES [Concomitant]
  42. BILBERRY [Concomitant]

REACTIONS (14)
  - Abasia [Unknown]
  - Back pain [Unknown]
  - Constipation [Unknown]
  - Fatigue [Unknown]
  - Vomiting [Unknown]
  - Myalgia [Unknown]
  - Dyspnoea [Unknown]
  - Nausea [Unknown]
  - Asthenia [Unknown]
  - Blood glucose increased [Unknown]
  - Sleep disorder [Unknown]
  - Drug hypersensitivity [Unknown]
  - Skin irritation [Unknown]
  - Hip arthroplasty [Unknown]
